FAERS Safety Report 10863265 (Version 3)
Quarter: 2015Q2

REPORT INFORMATION
  Report Type: Report from Study
  Country: CA (occurrence: CA)
  Receive Date: 20150224
  Receipt Date: 20150601
  Transmission Date: 20150821
  Serious: Yes (Hospitalization, Other)
  Sender: FDA-Public Use
  Company Number: CA-ABBVIE-15K-028-1348086-00

PATIENT
  Age: 41 Year
  Sex: Male
  Weight: 81.72 kg

DRUGS (3)
  1. PREDNISONE. [Suspect]
     Active Substance: PREDNISONE
     Route: 065
  2. PREDNISONE. [Suspect]
     Active Substance: PREDNISONE
     Indication: PRODUCT USED FOR UNKNOWN INDICATION
     Dosage: WEANED OFF
     Route: 065
  3. HUMIRA [Suspect]
     Active Substance: ADALIMUMAB
     Indication: CROHN^S DISEASE
     Route: 058
     Dates: start: 20140505, end: 20150122

REACTIONS (9)
  - Postoperative wound infection [Not Recovered/Not Resolved]
  - Colostomy [Unknown]
  - Impaired healing [Unknown]
  - Cough [Unknown]
  - Wound secretion [Unknown]
  - Gastrointestinal necrosis [Not Recovered/Not Resolved]
  - Post procedural complication [Not Recovered/Not Resolved]
  - Wound dehiscence [Unknown]
  - Suture related complication [Unknown]

NARRATIVE: CASE EVENT DATE: 20150122
